FAERS Safety Report 6201884-7 (Version None)
Quarter: 2009Q2

REPORT INFORMATION
  Report Type: 
  Country: None (occurrence: None)
  Receive Date: 20090526
  Receipt Date: 20090520
  Transmission Date: 20091009
  Serious: Yes (Hospitalization, Other)
  Sender: FDA-Public Use
  Company Number: PHHY2009JP19125

PATIENT
  Age: 35 Year
  Sex: Male

DRUGS (16)
  1. VOLTAREN [Suspect]
     Indication: STILL'S DISEASE ADULT ONSET
     Dosage: 75MG PER DAY
     Route: 048
  2. ACTEMRA [Suspect]
     Indication: STILL'S DISEASE ADULT ONSET
     Dosage: 4MG PER KG PER WEEK
     Dates: start: 20010601
  3. ACTEMRA [Suspect]
     Dosage: 6MG PER KG ONCE EVERY 2 WEEKS
  4. ACTEMRA [Suspect]
     Dosage: 8 MG/KG
     Route: 041
  5. ACTEMRA [Suspect]
     Dosage: 8 MG/KG
     Route: 041
  6. ACTEMRA [Suspect]
     Dosage: 8 MG/KG
     Route: 041
     Dates: start: 20030701
  7. PREDNISOLONE [Suspect]
     Indication: STILL'S DISEASE ADULT ONSET
     Dosage: 15 MG/DAY
     Route: 048
  8. PREDNISOLONE [Suspect]
     Dosage: 12.5 MG PER DAY
     Route: 048
  9. METHOTREXATE SODIUM [Concomitant]
     Dosage: 7.5MG PER WEEK
     Route: 065
  10. METHOTREXATE SODIUM [Concomitant]
     Dosage: 8MG PER WEEK
  11. BUCILLAMINE [Concomitant]
     Dosage: 200MG PER DAY
     Route: 065
  12. GOLD PREPARATIONS [Concomitant]
     Dosage: 160MG
  13. SULFASALAZINE [Concomitant]
     Dosage: 1000MG PER DAY
     Route: 065
  14. AZATHIOPRINE [Concomitant]
     Dosage: 100MG PER DAY
     Route: 065
  15. CYCLOSPORINE [Concomitant]
     Dosage: 150MG PER DAY
     Route: 065
  16. CYCLOSPORINE [Concomitant]
     Dosage: 125MG PER DAY

REACTIONS (7)
  - ARTHRALGIA [None]
  - DEEP VEIN THROMBOSIS [None]
  - HAEMATOCHEZIA [None]
  - HIP ARTHROPLASTY [None]
  - JOINT DESTRUCTION [None]
  - KNEE ARTHROPLASTY [None]
  - PYREXIA [None]
